FAERS Safety Report 5258602-9 (Version None)
Quarter: 2007Q1

REPORT INFORMATION
  Report Type: 
  Country: None (occurrence: None)
  Receive Date: 20070308
  Receipt Date: 20070302
  Transmission Date: 20070707
  Serious: Yes (Hospitalization)
  Sender: FDA-Public Use
  Company Number: 2007UW04097

PATIENT
  Age: 70 Year
  Sex: Female

DRUGS (1)
  1. RHINOCORT AQUA [Suspect]
     Route: 045

REACTIONS (3)
  - INSOMNIA [None]
  - PSYCHOMOTOR HYPERACTIVITY [None]
  - PSYCHOTIC DISORDER [None]
